FAERS Safety Report 5200855-7 (Version None)
Quarter: 2007Q1

REPORT INFORMATION
  Report Type: 
  Country: None (occurrence: None)
  Receive Date: 20070108
  Receipt Date: 20070103
  Transmission Date: 20070707
  Serious: Yes (Other)
  Sender: FDA-Public Use
  Company Number: 2007UW00207

PATIENT
  Age: 60 Year
  Sex: Female

DRUGS (1)
  1. ARIMIDEX [Suspect]
     Indication: CHEST WALL MASS
     Route: 048

REACTIONS (2)
  - PERICARDIAL EFFUSION [None]
  - PLEURAL EFFUSION [None]
